FAERS Safety Report 10332570 (Version 2)
Quarter: 2014Q3

REPORT INFORMATION
  Report Type: Spontaneous
  Country: US (occurrence: US)
  Receive Date: 20140722
  Receipt Date: 20140722
  Transmission Date: 20150326
  Serious: No
  Sender: FDA-Public Use
  Company Number: US-UNITED THERAPEUTICS-UTC-041047

PATIENT
  Age: 60 Year
  Sex: Female
  Weight: 75.74 kg

DRUGS (5)
  1. FLOLAN [Suspect]
     Active Substance: EPOPROSTENOL SODIUM
     Dosage: 0.0104 UG/KG/MIN
     Route: 042
     Dates: start: 20100206
  2. ADCIRCA [Suspect]
     Active Substance: TADALAFIL
     Route: 065
  3. TYVASO [Suspect]
     Active Substance: TREPROSTINIL
     Dosage: 18-54 MICROGRAMS
     Dates: start: 20131101
  4. TRACLEER [Concomitant]
     Active Substance: BOSENTAN\BOSENTAN MONOHYDRATE
  5. OXYGEN. [Concomitant]
     Active Substance: OXYGEN

REACTIONS (9)
  - Asthenia [Unknown]
  - Headache [Unknown]
  - Nasal congestion [Unknown]
  - Dyspnoea [Unknown]
  - Respiratory tract congestion [Unknown]
  - Fatigue [Unknown]
  - Chest pain [Unknown]
  - Painful respiration [Unknown]
  - Cough [Unknown]

NARRATIVE: CASE EVENT DATE: 201311
